FAERS Safety Report 15209544 (Version 2)
Quarter: 2020Q1

REPORT INFORMATION
  Report Type: Other
  Country: CA (occurrence: CA)
  Receive Date: 20180727
  Receipt Date: 20200217
  Transmission Date: 20200409
  Serious: Yes (Hospitalization, Other)
  Sender: FDA-Public Use
  Company Number: CA-DEPOMED, INC.-CA-2018DEP001574

PATIENT
  Age: 85 Year
  Sex: Male

DRUGS (18)
  1. ESBRIET [Suspect]
     Active Substance: PIRFENIDONE
     Dosage: 267 MG, TID
     Route: 048
  2. DICLOFENAC POTASSIUM. [Suspect]
     Active Substance: DICLOFENAC POTASSIUM
     Indication: PRODUCT USED FOR UNKNOWN INDICATION
     Dosage: UNK
     Route: 065
  3. ESBRIET [Suspect]
     Active Substance: PIRFENIDONE
     Dosage: 534 MG, TID
     Route: 048
  4. ROSUVASTATIN. [Concomitant]
     Active Substance: ROSUVASTATIN
     Indication: PRODUCT USED FOR UNKNOWN INDICATION
     Dosage: UNK
  5. DILAUDID [Suspect]
     Active Substance: HYDROMORPHONE HYDROCHLORIDE
     Indication: INTERVERTEBRAL DISC DISORDER
     Dosage: UNK
     Route: 065
  6. ESBRIET [Suspect]
     Active Substance: PIRFENIDONE
     Indication: IDIOPATHIC PULMONARY FIBROSIS
     Dosage: UNK
     Route: 048
  7. TYLENOL WITH CODEINE [Suspect]
     Active Substance: ACETAMINOPHEN\CODEINE PHOSPHATE
     Indication: INTERVERTEBRAL DISC DISORDER
     Dosage: UNK
     Route: 065
  8. WARFARIN [Suspect]
     Active Substance: WARFARIN
     Indication: PRODUCT USED FOR UNKNOWN INDICATION
     Dosage: UNK
     Route: 065
  9. LASIX [Concomitant]
     Active Substance: FUROSEMIDE
     Indication: PRODUCT USED FOR UNKNOWN INDICATION
     Dosage: UNK
  10. BISOPROLOL [Concomitant]
     Active Substance: BISOPROLOL
     Indication: PRODUCT USED FOR UNKNOWN INDICATION
     Dosage: UNK
  11. TYLENOL [Concomitant]
     Active Substance: ACETAMINOPHEN
     Indication: PRODUCT USED FOR UNKNOWN INDICATION
     Dosage: UNK
  12. ESBRIET [Suspect]
     Active Substance: PIRFENIDONE
     Dosage: 534 MG, TID
     Route: 048
  13. PROPAFENONE. [Concomitant]
     Active Substance: PROPAFENONE
     Indication: PRODUCT USED FOR UNKNOWN INDICATION
     Dosage: UNK
  14. ESBRIET [Suspect]
     Active Substance: PIRFENIDONE
     Dosage: 267 MG, TID
     Route: 048
  15. ESBRIET [Suspect]
     Active Substance: PIRFENIDONE
     Dosage: UNK
     Route: 048
  16. ATIVAN [Suspect]
     Active Substance: LORAZEPAM
     Indication: BACK PAIN
     Dosage: UNK
     Route: 065
  17. ESBRIET [Suspect]
     Active Substance: PIRFENIDONE
     Dosage: 534 MG, TID
     Route: 048
  18. ESBRIET [Suspect]
     Active Substance: PIRFENIDONE
     Dosage: 801 MG, TID
     Route: 048

REACTIONS (23)
  - Pneumonia [Not Recovered/Not Resolved]
  - Dyspnoea [Not Recovered/Not Resolved]
  - Eye haemorrhage [Not Recovered/Not Resolved]
  - Eye pain [Not Recovered/Not Resolved]
  - Lower respiratory tract infection [Not Recovered/Not Resolved]
  - International normalised ratio decreased [Not Recovered/Not Resolved]
  - Decreased appetite [Not Recovered/Not Resolved]
  - Dizziness [Not Recovered/Not Resolved]
  - Diarrhoea [Not Recovered/Not Resolved]
  - Heart rate increased [Not Recovered/Not Resolved]
  - Malaise [Not Recovered/Not Resolved]
  - Nasopharyngitis [Not Recovered/Not Resolved]
  - Retinal detachment [Not Recovered/Not Resolved]
  - Chest pain [Not Recovered/Not Resolved]
  - Feeling abnormal [Not Recovered/Not Resolved]
  - Intervertebral disc disorder [Not Recovered/Not Resolved]
  - Abdominal discomfort [Not Recovered/Not Resolved]
  - Abdominal distension [Not Recovered/Not Resolved]
  - Asthenia [Not Recovered/Not Resolved]
  - Fatigue [Not Recovered/Not Resolved]
  - Drug interaction [Not Recovered/Not Resolved]
  - Eructation [Not Recovered/Not Resolved]
  - Pneumonia [Unknown]
